FAERS Safety Report 16827815 (Version 1)
Quarter: 2019Q4

REPORT INFORMATION
  Report Type: Spontaneous
  Country: US (occurrence: US)
  Receive Date: 20190919
  Receipt Date: 20190919
  Transmission Date: 20200122
  Serious: No
  Sender: FDA-Public Use
  Company Number: None

PATIENT
  Sex: Female
  Weight: 72 kg

DRUGS (3)
  1. AIMOVIG [Suspect]
     Active Substance: ERENUMAB-AOOE
     Indication: MIGRAINE
     Dosage: ?          QUANTITY:1 INJECTION(S);OTHER FREQUENCY:MONTHLY;?
     Route: 058
     Dates: start: 20181027
  2. SUMATRIPTAN. [Concomitant]
     Active Substance: SUMATRIPTAN
  3. TROKENDI [Concomitant]
     Active Substance: TOPIRAMATE

REACTIONS (8)
  - Fatigue [None]
  - Arthralgia [None]
  - Constipation [None]
  - Paraesthesia [None]
  - Drug ineffective [None]
  - Blepharospasm [None]
  - Injection site swelling [None]
  - Muscle spasms [None]
